FAERS Safety Report 14897648 (Version 4)
Quarter: 2019Q2

REPORT INFORMATION
  Report Type: Spontaneous
  Country: US (occurrence: US)
  Receive Date: 20180515
  Receipt Date: 20190515
  Transmission Date: 20190711
  Serious: Yes (Hospitalization, Disabling, Other)
  Sender: FDA-Public Use
  Company Number: US-ASTRAZENECA-2018SE62301

PATIENT
  Age: 15076 Day
  Sex: Male
  Weight: 68.5 kg

DRUGS (50)
  1. NEXIUM [Suspect]
     Active Substance: ESOMEPRAZOLE MAGNESIUM
     Indication: GASTROOESOPHAGEAL REFLUX DISEASE
     Route: 048
     Dates: start: 201105, end: 201312
  2. CYMBALTA [Concomitant]
     Active Substance: DULOXETINE HYDROCHLORIDE
     Indication: INSOMNIA
     Route: 048
     Dates: start: 2005
  3. ZOLPIDEM [Concomitant]
     Active Substance: ZOLPIDEM\ZOLPIDEM TARTRATE
     Dates: start: 2010, end: 2018
  4. SALSALATE. [Concomitant]
     Active Substance: SALSALATE
     Indication: PAIN
     Dates: start: 2011, end: 2012
  5. NEXIUM [Suspect]
     Active Substance: ESOMEPRAZOLE MAGNESIUM
     Indication: GASTROOESOPHAGEAL REFLUX DISEASE
     Route: 048
     Dates: start: 201105, end: 201312
  6. NABUMETONE. [Concomitant]
     Active Substance: NABUMETONE
     Dates: start: 2010, end: 2013
  7. SEROQUEL [Concomitant]
     Active Substance: QUETIAPINE FUMARATE
     Dates: start: 2018
  8. NYSTATIN. [Concomitant]
     Active Substance: NYSTATIN
  9. DULOXETINE. [Concomitant]
     Active Substance: DULOXETINE
  10. AMLODIPINE BESYLATE. [Concomitant]
     Active Substance: AMLODIPINE BESYLATE
     Route: 048
     Dates: start: 2014
  11. CARBAMAZEPINE. [Concomitant]
     Active Substance: CARBAMAZEPINE
     Indication: NEURALGIA
     Route: 048
     Dates: start: 2012, end: 2013
  12. LYRICA [Concomitant]
     Active Substance: PREGABALIN
     Indication: ANALGESIC THERAPY
     Dates: start: 2006, end: 2013
  13. TRAMADOL. [Concomitant]
     Active Substance: TRAMADOL
     Dates: start: 2006, end: 2017
  14. PREDNISONE. [Concomitant]
     Active Substance: PREDNISONE
     Dates: start: 2015
  15. RANITIDINE. [Concomitant]
     Active Substance: RANITIDINE
     Indication: GASTROOESOPHAGEAL REFLUX DISEASE
     Dates: start: 2014, end: 2015
  16. HUMALOG [Concomitant]
     Active Substance: INSULIN LISPRO
  17. NOVOLIN [Concomitant]
     Active Substance: INSULIN HUMAN
  18. PRILOSEC [Suspect]
     Active Substance: OMEPRAZOLE MAGNESIUM
     Dosage: GENERIC
     Route: 065
     Dates: start: 2014
  19. ATORVASTATIN [Concomitant]
     Active Substance: ATORVASTATIN
     Indication: HYPERLIPIDAEMIA
     Route: 048
     Dates: start: 2017
  20. CHLORHEXIDINE [Concomitant]
     Active Substance: CHLORHEXIDINE
     Route: 048
     Dates: start: 2011, end: 2013
  21. IBUPROFEN. [Concomitant]
     Active Substance: IBUPROFEN
  22. HYDROCORTISONE. [Concomitant]
     Active Substance: HYDROCORTISONE
     Indication: ECZEMA
     Dates: start: 2013
  23. TIZANIDINE. [Concomitant]
     Active Substance: TIZANIDINE
     Dates: start: 2015
  24. TOBRAMYCIN. [Concomitant]
     Active Substance: TOBRAMYCIN
     Dates: start: 2014, end: 2015
  25. TERBINAFINE HYDROCHLORIDE. [Concomitant]
     Active Substance: TERBINAFINE HYDROCHLORIDE
     Indication: INFECTION
     Dates: start: 2014, end: 2015
  26. CAPZASIN HP ARTHRITIS PAIN RELIEF [Concomitant]
     Active Substance: CAPSAICIN
     Dates: start: 2014, end: 2015
  27. BACLOFEN. [Concomitant]
     Active Substance: BACLOFEN
     Indication: BACK PAIN
     Route: 048
     Dates: start: 2016
  28. FLUCONAZOLE. [Concomitant]
     Active Substance: FLUCONAZOLE
  29. TERBINAFINE HYDROCHLORIDE. [Concomitant]
     Active Substance: TERBINAFINE HYDROCHLORIDE
     Dates: start: 2014, end: 2015
  30. LISINOPRIL. [Concomitant]
     Active Substance: LISINOPRIL
  31. CYCLOBENZAPRINE. [Concomitant]
     Active Substance: CYCLOBENZAPRINE
     Indication: BACK PAIN
     Route: 048
     Dates: start: 2012, end: 2013
  32. GABAPENTIN. [Concomitant]
     Active Substance: GABAPENTIN
     Dates: start: 2009, end: 2010
  33. LEVOFLOXACIN. [Concomitant]
     Active Substance: LEVOFLOXACIN
     Indication: SKIN INFECTION
     Dates: start: 2013
  34. NYSTATIN. [Concomitant]
     Active Substance: NYSTATIN
     Indication: HYPERTENSION
     Dates: start: 2009
  35. TYLENOL [Concomitant]
     Active Substance: ACETAMINOPHEN
     Dates: start: 2018
  36. HYDROCODONE BITARTRATE AND ACETAMINOPHEN [Concomitant]
     Active Substance: ACETAMINOPHEN\HYDROCODONE BITARTRATE
  37. ATORVASTATIN [Concomitant]
     Active Substance: ATORVASTATIN
  38. DOXYCYCLINE. [Concomitant]
     Active Substance: DOXYCYCLINE
  39. METRONIDAZOLE. [Concomitant]
     Active Substance: METRONIDAZOLE
     Dates: start: 2006, end: 2013
  40. NORVASC [Concomitant]
     Active Substance: AMLODIPINE BESYLATE
     Dates: start: 2011
  41. NEXIUM [Suspect]
     Active Substance: ESOMEPRAZOLE MAGNESIUM
     Indication: GASTROOESOPHAGEAL REFLUX DISEASE
     Route: 048
     Dates: start: 20110726
  42. PRILOSEC [Suspect]
     Active Substance: OMEPRAZOLE MAGNESIUM
     Route: 048
     Dates: start: 201105, end: 201312
  43. ACETAMINOPHEN. [Concomitant]
     Active Substance: ACETAMINOPHEN
     Route: 048
     Dates: start: 2014
  44. AMOXICILLIN. [Concomitant]
     Active Substance: AMOXICILLIN
     Route: 048
     Dates: start: 2013, end: 2014
  45. ASPIRIN. [Concomitant]
     Active Substance: ASPIRIN
     Route: 048
     Dates: start: 2013, end: 2014
  46. CRESTOR [Concomitant]
     Active Substance: ROSUVASTATIN CALCIUM
     Indication: HYPERLIPIDAEMIA
     Route: 048
     Dates: start: 2012, end: 2013
  47. FUROSEMIDE. [Concomitant]
     Active Substance: FUROSEMIDE
     Indication: BLOOD PRESSURE MEASUREMENT
     Dates: start: 2009, end: 2016
  48. HYDROCHLOROTHIAZIDE. [Concomitant]
     Active Substance: HYDROCHLOROTHIAZIDE
     Dates: start: 2013
  49. LISINOPRIL. [Concomitant]
     Active Substance: LISINOPRIL
     Dates: start: 2006, end: 2013
  50. NAPROXEN. [Concomitant]
     Active Substance: NAPROXEN
     Dates: start: 2011

REACTIONS (6)
  - Chronic kidney disease [Not Recovered/Not Resolved]
  - Renal failure [Unknown]
  - Renal disorder [Unknown]
  - Acute kidney injury [Unknown]
  - Renal tubular necrosis [Unknown]
  - Nephrogenic anaemia [Unknown]

NARRATIVE: CASE EVENT DATE: 20140327
